FAERS Safety Report 16708029 (Version 1)
Quarter: 2019Q3

REPORT INFORMATION
  Report Type: Spontaneous
  Country: DE (occurrence: DE)
  Receive Date: 20190815
  Receipt Date: 20190815
  Transmission Date: 20191004
  Serious: Yes (Hospitalization)
  Sender: FDA-Public Use
  Company Number: DE-NOVOPROD-677813

PATIENT
  Age: 77 Year
  Sex: Female

DRUGS (18)
  1. METOCLOPRAMIDE. [Concomitant]
     Active Substance: METOCLOPRAMIDE
     Dosage: 10 MG
     Route: 065
  2. METOPROLOL. [Concomitant]
     Active Substance: METOPROLOL
     Dosage: 95 MG, QD (0.5-0-0.5-0)
     Route: 065
  3. SALBUTAMOL [Concomitant]
     Active Substance: ALBUTEROL
     Dosage: 5 MG/ML, (3-3-3-3, 4X3 DROPS)
     Route: 055
  4. VALSARTAN. [Concomitant]
     Active Substance: VALSARTAN
     Dosage: 80 MG, BID (2-0-2-0)
     Route: 065
  5. SIMVASTATIN. [Concomitant]
     Active Substance: SIMVASTATIN
     Dosage: 40 MG, QD (20 MG, 0-0-2-0)
     Route: 065
  6. AMLODIPINE [Concomitant]
     Active Substance: AMLODIPINE BESYLATE
     Dosage: 5 MG, BID (1-0-1-0)
     Route: 065
  7. ZOPICLON [Concomitant]
     Active Substance: ZOPICLONE
     Dosage: 3.75 MG, (0-0-0-0.5)
     Route: 065
  8. HUMAN INSULIN [Suspect]
     Active Substance: INSULIN HUMAN
     Indication: PRODUCT USED FOR UNKNOWN INDICATION
     Dosage: 18-0-10-0
     Route: 065
  9. HYDROCHLOROTHIAZID [Concomitant]
     Active Substance: HYDROCHLOROTHIAZIDE
     Dosage: 25 MG, (0.5-0-0-0)
     Route: 065
  10. URAPIDIL [Concomitant]
     Active Substance: URAPIDIL
     Dosage: 60 MG, TID (1-0-1-1)
     Route: 065
  11. QUETIAPIN [Concomitant]
     Active Substance: QUETIAPINE
     Dosage: 100 MG, (0-0-0.5-0)
     Route: 065
  12. METAMIZOLE [Concomitant]
     Active Substance: METAMIZOLE
     Dosage: 500 MG, QID (1-1-1-1)
     Route: 065
  13. PANTOPRAZOLE [Concomitant]
     Active Substance: PANTOPRAZOLE
     Dosage: 40 MG, QD (0-0-1-0)
     Route: 065
  14. LEVOTHYROXINE SODIUM. [Concomitant]
     Active Substance: LEVOTHYROXINE SODIUM
     Dosage: 50 ?G, (1.5-0-0-0)
     Route: 065
  15. FENTANYL. [Concomitant]
     Active Substance: FENTANYL
     Dosage: 25 ?G/H (CHANGE EVER 3 DAYS; 4X PER 20 HUBS)
     Route: 062
  16. COLECALCIFEROL [Concomitant]
     Active Substance: CHOLECALCIFEROL
     Dosage: 1000 IE, (0-2-0-0)
     Route: 065
  17. ACETYLSALICYLSAEURE [Concomitant]
     Active Substance: ASPIRIN
     Dosage: 100 MG, QD (0-1-0-0)
     Route: 065
  18. IPRATROPIUM BROMIDE. [Concomitant]
     Active Substance: IPRATROPIUM BROMIDE
     Dosage: 0.5 MG, (20-20-20-20)
     Route: 055

REACTIONS (3)
  - Seizure [Unknown]
  - Hypoglycaemia [Unknown]
  - Accidental overdose [Unknown]

NARRATIVE: CASE EVENT DATE: 20171219
